FAERS Safety Report 5290670-0 (Version None)
Quarter: 2007Q2

REPORT INFORMATION
  Report Type: 
  Country: None (occurrence: None)
  Receive Date: 20070405
  Receipt Date: 20070405
  Transmission Date: 20071010
  Serious: Yes (Hospitalization)
  Sender: FDA-Public Use
  Company Number: None

PATIENT
  Age: 54 Year
  Sex: Female
  Weight: 59 kg

DRUGS (8)
  1. ABACAVIR [Suspect]
     Indication: HIV INFECTION
     Dosage: 600 MG  PO  QD
     Route: 048
  2. BACTRIM DS [Suspect]
     Dosage: 1 TAB PO QD
     Route: 048
  3. CEFEPIME [Concomitant]
  4. HEPARIN [Concomitant]
  5. RANITIDINE [Concomitant]
  6. HYDROXYZINE [Concomitant]
  7. LORAZEPAM [Concomitant]
  8. OXAZEPAM [Concomitant]

REACTIONS (11)
  - ALANINE AMINOTRANSFERASE INCREASED [None]
  - ASPARTATE AMINOTRANSFERASE INCREASED [None]
  - COUGH [None]
  - DIARRHOEA [None]
  - DRUG HYPERSENSITIVITY [None]
  - LETHARGY [None]
  - LIVER DISORDER [None]
  - LIVER FUNCTION TEST ABNORMAL [None]
  - NAUSEA [None]
  - PYREXIA [None]
  - VOMITING [None]
